FAERS Safety Report 4597993-9 (Version None)
Quarter: 2005Q1

REPORT INFORMATION
  Report Type: 
  Country: None (occurrence: None)
  Receive Date: 20050210
  Receipt Date: 20040809
  Transmission Date: 20050727
  Serious: Yes (Hospitalization)
  Sender: FDA-Public Use
  Company Number: 04P-163-0257424-00

PATIENT
  Age: 68 Year
  Sex: Female
  Weight: 65.318 kg

DRUGS (12)
  1. TRICOR [Suspect]
     Indication: HYPERLIPIDAEMIA
     Dosage: 67 MG, 1 IN 1 D, PER ORAL
     Route: 048
     Dates: start: 20031201, end: 20040305
  2. CELECOXIB [Concomitant]
  3. ENALAPRIL MALEATE [Concomitant]
  4. ATENOLOL [Concomitant]
  5. LEVOTHYROXINE SODIUM [Concomitant]
  6. SPIRONOLACTONE [Concomitant]
  7. FUROSEMIDE [Concomitant]
  8. ATORVASTATIN [Concomitant]
  9. LOPERAMIDE HCL [Concomitant]
  10. HYOSCYAMINE [Concomitant]
  11. MULTI-VITAMINS [Concomitant]
  12. CALCIUM WITH VITAMIN D [Concomitant]

REACTIONS (3)
  - BLOOD CREATININE INCREASED [None]
  - DIFFICULTY IN WALKING [None]
  - RHABDOMYOLYSIS [None]
